FAERS Safety Report 5089720-6 (Version None)
Quarter: 2006Q3

REPORT INFORMATION
  Report Type: 
  Country: None (occurrence: None)
  Receive Date: 20060828
  Receipt Date: 20060704
  Transmission Date: 20061208
  Serious: Yes (Other)
  Sender: FDA-Public Use
  Company Number: PHBS2006JP10110

PATIENT
  Age: 59 Year
  Sex: Male

DRUGS (5)
  1. TEGRETOL [Suspect]
     Indication: SUBARACHNOID HAEMORRHAGE
     Dosage: 600 MG/DAY
     Route: 048
  2. PURSENNID [Suspect]
     Dosage: 5 MG/DAY
     Route: 048
  3. VALERIN [Suspect]
     Dosage: 600 MG/DAY
     Route: 048
     Dates: start: 20060126, end: 20060317
  4. ARICEPT [Suspect]
     Dosage: 5 MG/DAY
     Route: 048
     Dates: start: 20060101
  5. ZONISAMIDE [Suspect]
     Dosage: 300 MG/DAY
     Route: 048
     Dates: start: 20060101

REACTIONS (3)
  - AMMONIA INCREASED [None]
  - BLOOD ALKALINE PHOSPHATASE INCREASED [None]
  - HYPERAMMONAEMIA [None]
